FAERS Safety Report 14431705 (Version 1)
Quarter: 2018Q1

REPORT INFORMATION
  Report Type: Spontaneous
  Country: SE (occurrence: SE)
  Receive Date: 20180124
  Receipt Date: 20180124
  Transmission Date: 20180509
  Serious: Yes (Disabling)
  Sender: FDA-Public Use
  Company Number: SE-LPDUSPRD-20171701

PATIENT
  Age: 20 Year
  Sex: Female

DRUGS (1)
  1. FERINJECT [Suspect]
     Active Substance: FERRIC CARBOXYMALTOSE
     Dosage: 1000 MG
     Route: 042
     Dates: start: 20170703, end: 20170703

REACTIONS (2)
  - Exposure during pregnancy [Unknown]
  - Skin discolouration [Recovered/Resolved with Sequelae]

NARRATIVE: CASE EVENT DATE: 20170703
